FAERS Safety Report 8480995-X (Version None)
Quarter: 2012Q3

REPORT INFORMATION
  Report Type: 
  Country: None (occurrence: None)
  Receive Date: 20120702
  Receipt Date: 20120622
  Transmission Date: 20120928
  Serious: Yes (Hospitalization)
  Sender: FDA-Public Use
  Company Number: JP-ELI_LILLY_AND_COMPANY-JP201205006302

PATIENT
  Age: 75 Year
  Sex: Female

DRUGS (2)
  1. FORTEO [Suspect]
     Dosage: UNK
     Route: 058
     Dates: start: 20120513
  2. FORTEO [Suspect]
     Dosage: UNK
     Route: 058
     Dates: start: 20120125, end: 20120324

REACTIONS (3)
  - COMPRESSION FRACTURE [None]
  - NAUSEA [None]
  - RESPIRATORY DISORDER [None]
